FAERS Safety Report 7283140-1 (Version None)
Quarter: 2011Q1

REPORT INFORMATION
  Report Type: 
  Country: None (occurrence: None)
  Receive Date: 20110209
  Receipt Date: 20110131
  Transmission Date: 20110831
  Serious: Yes (Other)
  Sender: FDA-Public Use
  Company Number: GB-JNJFOC-20101208022

PATIENT
  Age: 52 Year
  Sex: Female

DRUGS (3)
  1. MICONAZOLE [Suspect]
     Route: 067
  2. MICONAZOLE [Suspect]
     Indication: ILL-DEFINED DISORDER
     Route: 067
  3. WARFARIN SODIUM [Interacting]
     Indication: PRODUCT USED FOR UNKNOWN INDICATION
     Route: 065

REACTIONS (3)
  - INTERNATIONAL NORMALISED RATIO INCREASED [None]
  - RENAL HAEMORRHAGE [None]
  - DRUG INTERACTION [None]
